FAERS Safety Report 7962368-9 (Version None)
Quarter: 2011Q4

REPORT INFORMATION
  Report Type: 
  Country: None (occurrence: None)
  Receive Date: 20111207
  Receipt Date: 20111128
  Transmission Date: 20120403
  Serious: Yes (Death)
  Sender: FDA-Public Use
  Company Number: JP-MERCK-1110USA02811

PATIENT
  Age: 77 Year
  Sex: Male
  Weight: 58 kg

DRUGS (10)
  1. FERROUS CITRATE [Concomitant]
     Route: 065
     Dates: start: 20110315, end: 20110723
  2. JANUVIA [Suspect]
     Indication: TYPE 2 DIABETES MELLITUS
     Route: 048
     Dates: start: 20110412, end: 20110917
  3. TAMSULOSIN HCL [Concomitant]
     Route: 065
     Dates: start: 20110225, end: 20110904
  4. LEVOFLOXACIN [Concomitant]
     Route: 065
     Dates: start: 20110218, end: 20110222
  5. CEFAZOLIN SODIUM [Concomitant]
     Route: 065
     Dates: start: 20110817, end: 20110821
  6. FERROUS CITRATE [Concomitant]
     Route: 065
     Dates: start: 20110905
  7. LASIX [Concomitant]
     Route: 065
     Dates: start: 20110824, end: 20110101
  8. URIEF [Concomitant]
     Route: 065
     Dates: start: 20110905
  9. LEVOFLOXACIN [Concomitant]
     Route: 065
     Dates: start: 20110817, end: 20110821
  10. LASIX [Concomitant]
     Route: 065
     Dates: start: 20110225, end: 20110524

REACTIONS (1)
  - INTERSTITIAL LUNG DISEASE [None]
